FAERS Safety Report 5250389-9 (Version None)
Quarter: 2007Q1

REPORT INFORMATION
  Report Type: 
  Country: None (occurrence: None)
  Receive Date: 20070228
  Receipt Date: 20060428
  Transmission Date: 20070707
  Serious: No
  Sender: FDA-Public Use
  Company Number: US-GLAXOSMITHKLINE-A0600914A

PATIENT
  Sex: Female

DRUGS (3)
  1. LAMICTAL [Suspect]
     Indication: BIPOLAR DISORDER
     Dosage: 100MG PER DAY
     Route: 048
     Dates: start: 20060125, end: 20060309
  2. TAMOXIFEN CITRATE [Concomitant]
  3. CLONOPIN [Concomitant]

REACTIONS (1)
  - ORAL SOFT TISSUE DISORDER [None]
